FAERS Safety Report 9275603 (Version 1)
Quarter: 2013Q2

REPORT INFORMATION
  Report Type: Spontaneous
  Country: US (occurrence: None)
  Receive Date: 20130502
  Receipt Date: 20130502
  Transmission Date: 20140414
  Serious: Yes (Life-Threatening, Hospitalization)
  Sender: FDA-Public Use
  Company Number: None

PATIENT
  Age: 58 Year
  Sex: Female
  Weight: 65.77 kg

DRUGS (1)
  1. SUPREP BOWEL PREP KIT [Suspect]
     Dosage: 6 OUNCE BOTTLE
     Route: 048
     Dates: start: 20130425, end: 20130425

REACTIONS (7)
  - Dizziness [None]
  - Nausea [None]
  - Loss of consciousness [None]
  - Feeling cold [None]
  - Unresponsive to stimuli [None]
  - Hyponatraemia [None]
  - Memory impairment [None]
